FAERS Safety Report 23706025 (Version 1)
Quarter: 2024Q2

REPORT INFORMATION
  Report Type: Spontaneous
  Country: US (occurrence: None)
  Receive Date: 20240403
  Receipt Date: 20240403
  Transmission Date: 20240715
  Serious: No
  Sender: FDA-Public Use
  Company Number: None

PATIENT
  Age: 44 Year
  Sex: Female

DRUGS (2)
  1. ENTYVIO [Suspect]
     Active Substance: VEDOLIZUMAB
     Indication: Colitis ulcerative
     Dosage: FREQUENCY : MONTHLY;?
  2. ENTYVIO [Suspect]
     Active Substance: VEDOLIZUMAB
     Indication: Off label use

REACTIONS (1)
  - Off label use [None]
